FAERS Safety Report 8538749-1 (Version None)
Quarter: 2012Q3

REPORT INFORMATION
  Report Type: 
  Country: None (occurrence: None)
  Receive Date: 20120726
  Receipt Date: 20120719
  Transmission Date: 20120928
  Serious: Yes (Disabling, Other)
  Sender: FDA-Public Use
  Company Number: US-PERRIGO-12US004747

PATIENT
  Sex: Female
  Weight: 41.723 kg

DRUGS (1)
  1. MINOXIDIL (FOR WOMEN) [Suspect]
     Indication: ALOPECIA
     Dosage: 1 ML, BID
     Route: 061
     Dates: start: 20120327, end: 20120526

REACTIONS (21)
  - EYELID OEDEMA [None]
  - RASH MACULAR [None]
  - DERMATITIS CONTACT [None]
  - DARK CIRCLES UNDER EYES [None]
  - PALPITATIONS [None]
  - PALLOR [None]
  - DIZZINESS [None]
  - SWELLING FACE [None]
  - NAUSEA [None]
  - EYE SWELLING [None]
  - OFF LABEL USE [None]
  - HEADACHE [None]
  - PERIORBITAL OEDEMA [None]
  - BLOOD PRESSURE INCREASED [None]
  - SKIN DISORDER [None]
  - HEART RATE IRREGULAR [None]
  - ANXIETY [None]
  - FLUSHING [None]
  - OEDEMA PERIPHERAL [None]
  - INSOMNIA [None]
  - HEART RATE INCREASED [None]
